FAERS Safety Report 14354914 (Version 1)
Quarter: 2018Q1

REPORT INFORMATION
  Report Type: Spontaneous
  Country: GB (occurrence: GB)
  Receive Date: 20180105
  Receipt Date: 20180105
  Transmission Date: 20180509
  Serious: Yes (Other)
  Sender: FDA-Public Use
  Company Number: GB-ROCHE-2048213

PATIENT
  Age: 3 Year
  Sex: Male

DRUGS (7)
  1. BEVACIZUMAB. [Suspect]
     Active Substance: BEVACIZUMAB
     Dosage: FOR 2 WEEKS
     Route: 065
  2. BEVACIZUMAB. [Suspect]
     Active Substance: BEVACIZUMAB
     Indication: OPTIC GLIOMA
     Dosage: FOR 11 WEEKS
     Route: 065
  3. VINCRISTINE [Concomitant]
     Active Substance: VINCRISTINE
  4. BEVACIZUMAB. [Suspect]
     Active Substance: BEVACIZUMAB
     Dosage: FOR 4 MONTHS
     Route: 065
  5. IRINOTECAN [Concomitant]
     Active Substance: IRINOTECAN
     Indication: OPTIC GLIOMA
     Dosage: FOR 11 WEEKS
     Route: 065
  6. CARBOPLATIN. [Concomitant]
     Active Substance: CARBOPLATIN
  7. VINBLASTINE [Concomitant]
     Active Substance: VINBLASTINE
     Route: 065

REACTIONS (1)
  - Carotid artery stenosis [Unknown]
